FAERS Safety Report 10832590 (Version 1)
Quarter: 2015Q1

REPORT INFORMATION
  Report Type: Spontaneous
  Country: GB (occurrence: GB)
  Receive Date: 20150219
  Receipt Date: 20150219
  Transmission Date: 20150721
  Serious: Yes (Other)
  Sender: FDA-Public Use
  Company Number: PHHY2015GB019449

PATIENT
  Sex: Female

DRUGS (1)
  1. OMEPRAZOLE. [Suspect]
     Active Substance: OMEPRAZOLE
     Indication: GASTROINTESTINAL HAEMORRHAGE
     Dosage: UNK
     Route: 065
     Dates: start: 2009, end: 2014

REACTIONS (8)
  - Musculoskeletal discomfort [Unknown]
  - Pain [Unknown]
  - Bone callus excessive [Unknown]
  - Femoral neck fracture [Unknown]
  - Osteonecrosis [Unknown]
  - Joint effusion [Unknown]
  - Soft tissue injury [Unknown]
  - Gait disturbance [Unknown]

NARRATIVE: CASE EVENT DATE: 201406
